FAERS Safety Report 6036761-8 (Version None)
Quarter: 2009Q1

REPORT INFORMATION
  Report Type: 
  Country: None (occurrence: None)
  Receive Date: 20090114
  Receipt Date: 20080911
  Transmission Date: 20090719
  Serious: Yes (Hospitalization)
  Sender: FDA-Public Use
  Company Number: US-BRISTOL-MYERS SQUIBB COMPANY-14332274

PATIENT
  Age: 60 Year
  Sex: Female
  Weight: 111 kg

DRUGS (5)
  1. CISPLATIN [Suspect]
     Indication: NON-SMALL CELL LUNG CANCER
  2. GEMZAR [Suspect]
     Indication: NON-SMALL CELL LUNG CANCER
  3. AVASTIN [Suspect]
     Indication: NON-SMALL CELL LUNG CANCER
  4. METOPROLOL [Concomitant]
     Indication: HYPERTENSION
  5. ATIVAN [Concomitant]

REACTIONS (3)
  - GRAND MAL CONVULSION [None]
  - HYPERTENSION [None]
  - NAUSEA [None]
